FAERS Safety Report 21486247 (Version 1)
Quarter: 2022Q4

REPORT INFORMATION
  Report Type: Spontaneous
  Country: US (occurrence: None)
  Receive Date: 20221020
  Receipt Date: 20221020
  Transmission Date: 20230112
  Serious: No
  Sender: FDA-Public Use
  Company Number: None

PATIENT
  Sex: 0

DRUGS (1)
  1. TAMOXIFEN [Suspect]
     Active Substance: TAMOXIFEN
     Indication: Breast cancer
     Dosage: OTHER QUANTITY : 0.5 TABLET(S);?FREQUENCY : DAILY;?
     Route: 048
     Dates: start: 20220430, end: 20220822

REACTIONS (6)
  - Mood altered [None]
  - Insomnia [None]
  - Weight increased [None]
  - Acne [None]
  - Hot flush [None]
  - Arthralgia [None]
